FAERS Safety Report 16297117 (Version 1)
Quarter: 2019Q2

REPORT INFORMATION
  Report Type: Spontaneous
  Country: US (occurrence: US)
  Receive Date: 20190404
  Receipt Date: 20190404
  Transmission Date: 20190711
  Serious: Yes (Hospitalization)
  Sender: FDA-Public Use
  Company Number: None

PATIENT
  Age: 65 Year
  Sex: Male

DRUGS (1)
  1. CIPROFLOXACIN. [Suspect]
     Active Substance: CIPROFLOXACIN
     Indication: DIVERTICULITIS
     Dates: start: 20180418, end: 20180518

REACTIONS (4)
  - Homicidal ideation [None]
  - Hallucination [None]
  - Psychotic disorder [None]
  - Suicidal ideation [None]

NARRATIVE: CASE EVENT DATE: 20180419
